FAERS Safety Report 5352044-3 (Version None)
Quarter: 2007Q2

REPORT INFORMATION
  Report Type: 
  Country: None (occurrence: None)
  Receive Date: 20070607
  Receipt Date: 20070522
  Transmission Date: 20071010
  Serious: Yes (Hospitalization)
  Sender: FDA-Public Use
  Company Number: DSA_29660_2007

PATIENT
  Sex: Male

DRUGS (11)
  1. CARDIZEM CD [Suspect]
     Indication: HEART RATE INCREASED
     Dosage: (120 MG QD ORAL), ORAL
     Route: 048
     Dates: start: 20050101, end: 20070101
  2. VIAGRA [Suspect]
     Indication: ERECTILE DYSFUNCTION
     Dosage: ORAL
     Route: 048
     Dates: start: 20010101
  3. ZITHROMAX [Suspect]
     Indication: BRONCHITIS
     Dosage: ORAL
     Route: 048
     Dates: start: 20070201, end: 20070101
  4. RITALIN [Suspect]
     Dosage: ORAL
     Route: 048
  5. CAFFEINE [Suspect]
  6. MULTIVITAMIN WITH MINERALS [Concomitant]
  7. ASPIRIN [Concomitant]
  8. METOPROLOL SUCCINATE [Concomitant]
  9. LEVOTHYROXINE SODIUM [Concomitant]
  10. CLONAZEPAM [Concomitant]
  11. COZAAR [Concomitant]

REACTIONS (11)
  - ATRIAL FIBRILLATION [None]
  - BLOOD CAFFEINE INCREASED [None]
  - BRONCHITIS [None]
  - DEHYDRATION [None]
  - DIZZINESS [None]
  - DRUG WITHDRAWAL SYNDROME [None]
  - EJACULATION FAILURE [None]
  - FLUSHING [None]
  - HEART RATE DECREASED [None]
  - HEART RATE IRREGULAR [None]
  - PNEUMONIA [None]
